FAERS Safety Report 5890758-7 (Version None)
Quarter: 2008Q3

REPORT INFORMATION
  Report Type: 
  Country: None (occurrence: None)
  Receive Date: 20080918
  Receipt Date: 20080912
  Transmission Date: 20090109
  Serious: Yes (Hospitalization)
  Sender: FDA-Public Use
  Company Number: 08P-020-0476279-00

PATIENT
  Age: 8 Month
  Sex: Female

DRUGS (2)
  1. SYNAGIS [Suspect]
     Indication: PREMATURE BABY
     Dosage: 1ST DOSE (1ST DOSE); 2ND DOSE (2ND DOSE); 3RD DOSE; (3RD DOSE); INTRAMUSCULAR
     Route: 030
     Dates: start: 20080603, end: 20080603
  2. UNKNOWN VITAMINS [Concomitant]

REACTIONS (2)
  - BRONCHIOLITIS [None]
  - PNEUMONIA [None]
